FAERS Safety Report 9748549 (Version 2)
Quarter: 2013Q4

REPORT INFORMATION
  Report Type: Spontaneous
  Country: US (occurrence: US)
  Receive Date: 20131212
  Receipt Date: 20131212
  Transmission Date: 20140711
  Serious: Yes (Hospitalization)
  Sender: FDA-Public Use
  Company Number: US-ASTRAZENECA-2012SE29960

PATIENT
  Age: 55 Year
  Sex: Male
  Weight: 89.4 kg

DRUGS (21)
  1. PRILOSEC [Suspect]
     Indication: GASTROOESOPHAGEAL REFLUX DISEASE
     Route: 048
  2. NEXIUM [Suspect]
     Indication: GASTROOESOPHAGEAL REFLUX DISEASE
     Route: 048
     Dates: start: 2003, end: 20131114
  3. LISINOPRIL [Suspect]
     Route: 048
  4. LORAZEPAM [Concomitant]
     Indication: PANIC ATTACK
     Route: 048
  5. LORAZEPAM [Concomitant]
     Indication: ANXIETY
     Route: 048
  6. HYDROCODONE [Concomitant]
     Indication: PAIN
     Dosage: 7.5/325MG PRN
     Route: 048
  7. FLUTICASONE [Concomitant]
     Dosage: 50MCG, 2 SPRAYS IN EACH NOS
     Route: 045
  8. LORATIDINE [Concomitant]
     Indication: HYPERSENSITIVITY
     Route: 048
  9. CYMBALTA [Concomitant]
     Indication: BIPOLAR DISORDER
     Route: 048
  10. CYMBALTA [Concomitant]
     Indication: PAIN
     Route: 048
  11. ACYCLOVIR [Concomitant]
     Route: 048
  12. PIROXICAM [Concomitant]
     Indication: ARTHRITIS
     Route: 048
  13. CYCLOBENZAPRINE [Concomitant]
     Indication: MUSCLE SPASMS
     Route: 048
  14. VENTOLINE [Concomitant]
     Dosage: PRN
     Route: 055
  15. TRIAMCINOLONE [Concomitant]
     Route: 055
  16. OTHER ANTACIDS [Concomitant]
  17. TAGAMET [Concomitant]
     Indication: GASTROOESOPHAGEAL REFLUX DISEASE
  18. PREVACID [Concomitant]
     Indication: GASTROOESOPHAGEAL REFLUX DISEASE
  19. PROTONIX [Concomitant]
     Indication: GASTROOESOPHAGEAL REFLUX DISEASE
  20. ACIPHEX [Concomitant]
     Indication: GASTROOESOPHAGEAL REFLUX DISEASE
  21. ZANTAC [Concomitant]
     Indication: GASTROOESOPHAGEAL REFLUX DISEASE

REACTIONS (5)
  - Pain [Unknown]
  - Pancreatitis [Unknown]
  - Constipation [Unknown]
  - Drug dose omission [Unknown]
  - Drug ineffective [Unknown]
